FAERS Safety Report 5751101-7 (Version None)
Quarter: 2008Q2

REPORT INFORMATION
  Report Type: 
  Country: None (occurrence: None)
  Receive Date: 20080528
  Receipt Date: 20080512
  Transmission Date: 20081010
  Serious: Yes (Hospitalization)
  Sender: FDA-Public Use
  Company Number: PHEH2008US04510

PATIENT
  Age: 69 Year
  Sex: Female
  Weight: 64.399 kg

DRUGS (6)
  1. RECLAST [Suspect]
     Indication: OSTEOPOROSIS
     Dosage: 5 MG, ONCE YEARLY
     Dates: start: 20080408
  2. GLIPIZIDE [Concomitant]
  3. METOPROLOL - SLOW RELEASE [Concomitant]
     Dosage: 12.5 MG, QD
  4. LOVASTATIN [Concomitant]
     Dosage: 20 MG, QD
  5. LORAZEPAM [Concomitant]
     Dosage: 0.5 MG, Q8H PRN
  6. CALCIUM W/VITAMIN D NOS [Suspect]

REACTIONS (21)
  - ANOREXIA [None]
  - ASTHENIA [None]
  - BLOOD CALCIUM DECREASED [None]
  - BLOOD CREATINE PHOSPHOKINASE INCREASED [None]
  - BLOOD CREATININE INCREASED [None]
  - BLOOD GLUCOSE INCREASED [None]
  - BLOOD UREA INCREASED [None]
  - DIARRHOEA [None]
  - FATIGUE [None]
  - HYPERCALCAEMIA [None]
  - HYPERPARATHYROIDISM [None]
  - LACTOSE INTOLERANCE [None]
  - MYALGIA [None]
  - NAUSEA [None]
  - NEPHROLITHIASIS [None]
  - PRURITUS [None]
  - RENAL ATROPHY [None]
  - RENAL FAILURE ACUTE [None]
  - RENAL HYPERTROPHY [None]
  - URINE OUTPUT INCREASED [None]
  - VOMITING [None]
